FAERS Safety Report 6956686-0 (Version None)
Quarter: 2010Q3

REPORT INFORMATION
  Report Type: 
  Country: None (occurrence: None)
  Receive Date: 20100830
  Receipt Date: 20100823
  Transmission Date: 20110219
  Serious: Yes (Other)
  Sender: FDA-Public Use
  Company Number: DK-WYE-G05927410

PATIENT
  Sex: Female

DRUGS (18)
  1. EFFEXOR [Suspect]
     Indication: MENTAL DISORDER
     Dates: start: 20030613, end: 20030806
  2. EFFEXOR [Suspect]
     Dosage: 75+0+0+150 MG DAILY
     Dates: start: 20031008, end: 20031130
  3. EFFEXOR [Suspect]
     Dates: start: 20031201, end: 20040111
  4. EFFEXOR [Suspect]
     Dates: start: 20040706, end: 20040101
  5. EFFEXOR [Suspect]
     Dates: start: 20030807, end: 20031007
  6. EFFEXOR [Suspect]
     Dosage: 75+0+150 MG DAILY
     Dates: start: 20040112, end: 20040129
  7. EFFEXOR [Suspect]
     Dates: start: 20040130, end: 20040705
  8. ZYPREXA [Suspect]
     Indication: MENTAL DISORDER
     Dates: start: 20020901, end: 20030101
  9. TRUXAL [Concomitant]
     Dosage: 25 MG 1-2 TIMES PER DAY
     Dates: start: 20040419, end: 20040504
  10. OXAZEPAM [Concomitant]
     Dosage: 7.5 - 15 MG MAX 3 TIMES DAILY
     Dates: start: 20031008, end: 20040706
  11. PINEX [Concomitant]
     Dosage: 1 G MAX 3 TIMES DAILY
     Dates: start: 20031112
  12. IMOVANE [Concomitant]
     Dates: start: 20040112, end: 20040723
  13. ZELDOX [Suspect]
     Indication: MENTAL DISORDER
     Dates: start: 20030613, end: 20030619
  14. ZELDOX [Suspect]
     Dates: start: 20031106, end: 20040706
  15. ZELDOX [Suspect]
     Dates: start: 20040706, end: 20040101
  16. ZELDOX [Suspect]
     Dates: start: 20030620, end: 20030806
  17. ZELDOX [Suspect]
     Dosage: 40+0+80 MG
     Dates: start: 20030807, end: 20031105
  18. PACISYN [Concomitant]
     Dates: start: 20030807, end: 20030821

REACTIONS (7)
  - AMNESIA [None]
  - ANXIETY [None]
  - DISTURBANCE IN ATTENTION [None]
  - LEARNING DISORDER [None]
  - PSYCHIATRIC SYMPTOM [None]
  - SELF ESTEEM DECREASED [None]
  - WEIGHT INCREASED [None]
